FAERS Safety Report 23628299 (Version 1)
Quarter: 2024Q1

REPORT INFORMATION
  Report Type: Spontaneous
  Country: US (occurrence: US)
  Receive Date: 20240313
  Receipt Date: 20240313
  Transmission Date: 20240409
  Serious: Yes (Other)
  Sender: FDA-Public Use
  Company Number: US-BRISTOL-MYERS SQUIBB COMPANY-2024-031162

PATIENT
  Age: 65 Year
  Sex: Male

DRUGS (1)
  1. POMALYST [Suspect]
     Active Substance: POMALIDOMIDE
     Indication: Plasma cell myeloma
     Dosage: TAKE 1 WHOLE CAPSULE BY MOUTH WITH WATER W/O FOOD AT THE SAME TIME EVERY DAY FOR 21 DAYS FOLLOWED BY
     Route: 048
     Dates: start: 20240209

REACTIONS (2)
  - Viral rash [Recovered/Resolved]
  - Cough [Recovered/Resolved]
